FAERS Safety Report 23865840 (Version 1)
Quarter: 2024Q2

REPORT INFORMATION
  Report Type: Spontaneous
  Country: US (occurrence: US)
  Receive Date: 20240517
  Receipt Date: 20240517
  Transmission Date: 20240716
  Serious: No
  Sender: FDA-Public Use
  Company Number: US-HIKMA PHARMACEUTICALS USA INC.-US-H14001-23-68215

PATIENT
  Sex: Male

DRUGS (1)
  1. PREDNISONE [Suspect]
     Active Substance: PREDNISONE
     Indication: Product used for unknown indication
     Dosage: UNK
     Route: 065

REACTIONS (8)
  - Balance disorder [Unknown]
  - Increased appetite [Unknown]
  - Weight increased [Unknown]
  - Poor quality sleep [Unknown]
  - Hot flush [Unknown]
  - Pollakiuria [Unknown]
  - Fatigue [Unknown]
  - Hypertension [Unknown]
